FAERS Safety Report 4281742-8 (Version None)
Quarter: 2004Q1

REPORT INFORMATION
  Report Type: 
  Country: None (occurrence: None)
  Receive Date: 20040128
  Receipt Date: 20031204
  Transmission Date: 20041129
  Serious: Yes (Death)
  Sender: FDA-Public Use
  Company Number: 028-20785-03080288

PATIENT
  Age: 60 Year
  Sex: Female

DRUGS (25)
  1. THALOMID [Suspect]
     Indication: MULTIPLE MYELOMA
     Dosage: SEE IMAGE
     Route: 048
     Dates: start: 20031101, end: 20030101
  2. THALOMID [Suspect]
     Indication: MULTIPLE MYELOMA
     Dosage: SEE IMAGE
     Route: 048
     Dates: start: 20021001, end: 20030701
  3. THALOMID [Suspect]
     Indication: MULTIPLE MYELOMA
     Dosage: SEE IMAGE
     Route: 048
     Dates: start: 20030701, end: 20031001
  4. THALOMID [Suspect]
     Indication: MULTIPLE MYELOMA
     Dosage: SEE IMAGE
     Route: 048
     Dates: start: 20031001, end: 20031101
  5. THALOMID [Suspect]
  6. THALOMID [Suspect]
  7. THALOMID [Suspect]
  8. ISOPTIN [Concomitant]
  9. CALCIUM (CALCIUM) [Concomitant]
  10. HUMULIN (INSULIN HUMAN ZINC SUSPENSION) [Concomitant]
  11. DOMPERIDONE (DOMPERIDONE) [Concomitant]
  12. FERROUS SULFATE TAB [Concomitant]
  13. NEXIUM [Concomitant]
  14. LEVOTHYROXINE SODIUM [Concomitant]
  15. VERAPAMIL [Concomitant]
  16. NYSTATIN [Concomitant]
  17. DIMENHYDRINATE (DIMENHYDRINATE) [Concomitant]
  18. MYCOSTATIN (NYSTATIN) (SUSPENSION) [Concomitant]
  19. MOTILIUM [Concomitant]
  20. SENOKOT-S (SENOKOT-S) [Concomitant]
  21. PAMIDRONATE DISODIUM [Concomitant]
  22. FOLIC ACID [Concomitant]
  23. MORPHINE [Concomitant]
  24. VITAMIN D [Concomitant]
  25. HUMALOG [Concomitant]

REACTIONS (9)
  - ANOREXIA [None]
  - ASTHENIA [None]
  - DISEASE PROGRESSION [None]
  - DRUG TOXICITY [None]
  - FATIGUE [None]
  - HYPOGLYCAEMIA [None]
  - MULTIPLE MYELOMA [None]
  - TREMOR [None]
  - WEIGHT DECREASED [None]
